FAERS Safety Report 23475667 (Version 1)
Quarter: 2024Q1

REPORT INFORMATION
  Report Type: Report from Study
  Country: US (occurrence: US)
  Receive Date: 20240204
  Receipt Date: 20240204
  Transmission Date: 20240410
  Serious: No
  Sender: FDA-Public Use
  Company Number: US-EXELIXIS-CABO-23060314

PATIENT
  Age: 71 Year
  Sex: Male
  Weight: 9.07 kg

DRUGS (21)
  1. CABOMETYX [Suspect]
     Active Substance: CABOZANTINIB S-MALATE
     Indication: Hepatocellular carcinoma
     Dosage: 40 MG, QD
     Dates: end: 20230221
  2. CABOMETYX [Suspect]
     Active Substance: CABOZANTINIB S-MALATE
     Dosage: 40 MG, QD
     Dates: start: 20230227
  3. CABOMETYX [Suspect]
     Active Substance: CABOZANTINIB S-MALATE
     Dosage: 40 MG, QD
  4. METAMUCIL [Concomitant]
     Active Substance: PLANTAGO SEED
  5. MAGNESIUM [Concomitant]
     Active Substance: MAGNESIUM
  6. CALCIUM [Concomitant]
     Active Substance: CALCIUM
  7. CARVEDILOL [Concomitant]
     Active Substance: CARVEDILOL
  8. FENOFIBRATE [Concomitant]
     Active Substance: FENOFIBRATE
  9. METFORMIN [Concomitant]
     Active Substance: METFORMIN HYDROCHLORIDE
  10. NEXIUM [Concomitant]
     Active Substance: ESOMEPRAZOLE MAGNESIUM
  11. NOVOLIN N [Concomitant]
     Active Substance: INSULIN HUMAN
  12. OZEMPIC [Concomitant]
     Active Substance: SEMAGLUTIDE
  13. TACROLIMUS [Concomitant]
     Active Substance: TACROLIMUS
  14. TROSPIUM [Concomitant]
     Active Substance: TROSPIUM
  15. AMLODIPINE [Concomitant]
     Active Substance: AMLODIPINE BESYLATE
  16. ASPIRIN [Concomitant]
     Active Substance: ASPIRIN
  17. ATORVASTATIN [Concomitant]
     Active Substance: ATORVASTATIN
  18. BENADRYL [Concomitant]
     Active Substance: DIPHENHYDRAMINE HYDROCHLORIDE
  19. ONDANSETRON [Concomitant]
     Active Substance: ONDANSETRON
  20. PROCHLORPERAZINE [Concomitant]
     Active Substance: PROCHLORPERAZINE
  21. ICOSAPENT [Concomitant]
     Active Substance: ICOSAPENT

REACTIONS (14)
  - Abdominal discomfort [Not Recovered/Not Resolved]
  - Skin disorder [Unknown]
  - Pruritus [Recovered/Resolved]
  - Vomiting [Not Recovered/Not Resolved]
  - Constipation [Not Recovered/Not Resolved]
  - Blood pressure increased [Recovering/Resolving]
  - Diarrhoea [Not Recovered/Not Resolved]
  - Abdominal pain upper [Not Recovered/Not Resolved]
  - Decreased appetite [Unknown]
  - Weight decreased [Unknown]
  - Nausea [Not Recovered/Not Resolved]
  - General physical health deterioration [Unknown]
  - Hepatic cancer metastatic [Unknown]
  - Off label use [Unknown]

NARRATIVE: CASE EVENT DATE: 20230201
